FAERS Safety Report 9681092 (Version 3)
Quarter: 2013Q4

REPORT INFORMATION
  Report Type: Report from Study
  Country: GR (occurrence: GR)
  Receive Date: 20131111
  Receipt Date: 20131202
  Transmission Date: 20140711
  Serious: Yes (Death, Hospitalization)
  Sender: FDA-Public Use
  Company Number: GR-CELGENEUS-066-C4047-13110444

PATIENT
  Age: 65 Year
  Sex: Male
  Weight: 56 kg

DRUGS (14)
  1. CC-4047 [Suspect]
     Indication: PLASMA CELL MYELOMA
     Dosage: 4 MILLIGRAM
     Route: 048
     Dates: start: 20130715, end: 20130805
  2. CC-4047 [Suspect]
     Dosage: 4 MILLIGRAM
     Route: 048
     Dates: start: 20131007, end: 20131028
  3. DEXAMETHASONE [Suspect]
     Indication: PLASMA CELL MYELOMA
     Route: 065
     Dates: start: 20130715, end: 20130805
  4. DEXAMETHASONE [Suspect]
     Route: 065
     Dates: start: 20131007, end: 20131020
  5. REMERON [Concomitant]
     Indication: DEPRESSION
     Dosage: 30 MILLIGRAM
     Route: 065
     Dates: start: 200001
  6. ZYPREXA [Concomitant]
     Indication: DEPRESSION
     Dosage: 5 MILLIGRAM
     Route: 065
     Dates: start: 200001
  7. XANAX [Concomitant]
     Indication: DEPRESSION
     Dosage: .5 MILLIGRAM
     Route: 065
     Dates: start: 200001
  8. ZOVIRAX [Concomitant]
     Indication: INFECTION PROPHYLAXIS
     Dosage: 800 MILLIGRAM
     Route: 065
     Dates: start: 20130715
  9. DUROGESIC [Concomitant]
     Indication: BONE PAIN
     Dosage: 75 MILLIGRAM
     Route: 065
     Dates: start: 20130715
  10. ZYLAPOUR [Concomitant]
     Indication: HYPERURICAEMIA
     Dosage: 300 MILLIGRAM
     Route: 065
     Dates: start: 20130715
  11. LONALGAL [Concomitant]
     Indication: ANALGESIC THERAPY
     Route: 065
     Dates: start: 20130715
  12. LOSEC [Concomitant]
     Indication: PROPHYLAXIS
     Dosage: 20 MILLIGRAM
     Route: 065
     Dates: start: 20130715
  13. BACTRIMEL [Concomitant]
     Indication: INFECTION PROPHYLAXIS
     Dosage: MON, WED,FRI
     Route: 065
     Dates: start: 20130715
  14. BINOCRIT [Concomitant]
     Indication: ANAEMIA
     Route: 065
     Dates: start: 20130715

REACTIONS (1)
  - Febrile neutropenia [Fatal]
